FAERS Safety Report 10042246 (Version 2)
Quarter: 2014Q2

REPORT INFORMATION
  Report Type: Report from Study
  Country: UG (occurrence: UG)
  Receive Date: 20140327
  Receipt Date: 20140408
  Transmission Date: 20141212
  Serious: Yes (Death)
  Sender: FDA-Public Use
  Company Number: UG-VIIV HEALTHCARE LIMITED-B0980182A

PATIENT
  Age: 50 Year
  Sex: Female

DRUGS (12)
  1. GSK1349572 [Suspect]
     Indication: HIV INFECTION
  2. ARTESUNATE [Concomitant]
     Indication: MALARIA
     Dosage: 120MG PER DAY
     Route: 042
     Dates: start: 20140313
  3. MARAVIROC [Concomitant]
     Dosage: 150MG TWICE PER DAY
     Route: 048
  4. ETRAVIRINE [Concomitant]
     Dosage: 200MG TWICE PER DAY
     Route: 048
  5. DARUNAVIR [Concomitant]
     Dosage: 600MG TWICE PER DAY
     Route: 048
  6. TRUVADA [Concomitant]
     Dosage: 1TAB PER DAY
     Route: 048
  7. CO-TRIMOXAZOL [Concomitant]
     Dosage: 1920MG THREE TIMES PER DAY
     Route: 042
  8. METHYLPREDNISONE [Concomitant]
     Dosage: 1G PER DAY
     Route: 042
  9. DEXAMETHASONE [Concomitant]
     Dosage: 10MG TWICE PER DAY
     Route: 042
  10. NORMAL SALINE [Concomitant]
  11. DOPAMINE [Concomitant]
     Dosage: 83.3U PER DAY
     Route: 042
  12. ARTESUNATE [Concomitant]
     Dosage: 120MG PER DAY
     Route: 042

REACTIONS (3)
  - Pneumonia [Fatal]
  - Hypotension [Not Recovered/Not Resolved]
  - Anaemia [Not Recovered/Not Resolved]
